FAERS Safety Report 12072329 (Version 1)
Quarter: 2016Q1

REPORT INFORMATION
  Report Type: Spontaneous
  Country: US (occurrence: None)
  Receive Date: 20160211
  Receipt Date: 20160211
  Transmission Date: 20160526
  Serious: No
  Sender: FDA-Public Use
  Company Number: None

PATIENT
  Age: 29 Year
  Sex: Female
  Weight: 56.7 kg

DRUGS (3)
  1. MICRONOR [Concomitant]
     Active Substance: NORETHINDRONE
  2. ASHLYNA [Suspect]
     Active Substance: ETHINYL ESTRADIOL\LEVONORGESTREL
     Indication: DYSMENORRHOEA
     Dosage: 0.15-0.03-0.01 MG 1 TAB DAILY, ORAL
     Route: 048
     Dates: start: 201504, end: 201508
  3. OTHOMICRONOR [Concomitant]

REACTIONS (2)
  - Metrorrhagia [None]
  - Headache [None]

NARRATIVE: CASE EVENT DATE: 201508
